FAERS Safety Report 18547131 (Version 1)
Quarter: 2020Q4

REPORT INFORMATION
  Report Type: Spontaneous
  Country: FR (occurrence: FR)
  Receive Date: 20201125
  Receipt Date: 20201125
  Transmission Date: 20210114
  Serious: Yes (Death)
  Sender: FDA-Public Use
  Company Number: FR-ROCHE-2720226

PATIENT
  Age: 78 Year
  Sex: Male

DRUGS (3)
  1. CARBOPLATIN ACCORD [Suspect]
     Active Substance: CARBOPLATIN
     Indication: SMALL CELL LUNG CANCER METASTATIC
     Dosage: STRENGTH: 10 MG/ML?MOST RECENT DOSE RECEIVED PRIOR TO THE EVENT ONSET: 04/NOV/2020
     Route: 041
     Dates: start: 201909
  2. TECENTRIQ [Suspect]
     Active Substance: ATEZOLIZUMAB
     Indication: SMALL CELL LUNG CANCER METASTATIC
     Dosage: MOST RECENT DOSE RECEIVED PRIOR TO THE EVENT ONSET: 04/NOV/2020
     Route: 042
     Dates: start: 201909
  3. ETOPOSIDE MYLAN [Suspect]
     Active Substance: ETOPOSIDE
     Indication: SMALL CELL LUNG CANCER METASTATIC
     Dosage: STRENGTH: 20 MG/ML?MOST RECENT DOSE RECEIVED PRIOR TO THE EVENT ONSET: 04/NOV/2020
     Route: 042
     Dates: start: 201909

REACTIONS (2)
  - Neutropenia [Fatal]
  - Intestinal ischaemia [Fatal]

NARRATIVE: CASE EVENT DATE: 20201107
